FAERS Safety Report 10744948 (Version 1)
Quarter: 2015Q1

REPORT INFORMATION
  Report Type: Spontaneous
  Country: US (occurrence: None)
  Receive Date: 20150112
  Receipt Date: 20150112
  Transmission Date: 20150721
  Serious: Yes (Other)
  Sender: FDA-Public Use
  Company Number: 1367405

PATIENT
  Age: 17 Year
  Sex: Male
  Weight: 70 kg

DRUGS (1)
  1. ALTEPLASE (ALTEPLASE) [Suspect]
     Active Substance: ALTEPLASE
     Indication: PULMONARY EMBOLISM

REACTIONS (2)
  - Post procedural haemorrhage [None]
  - Catheter site haemorrhage [None]
